FAERS Safety Report 13428169 (Version 2)
Quarter: 2017Q2

REPORT INFORMATION
  Report Type: Spontaneous
  Country: TN (occurrence: TN)
  Receive Date: 20170411
  Receipt Date: 20170420
  Transmission Date: 20170830
  Serious: Yes (Hospitalization, Other)
  Sender: FDA-Public Use
  Company Number: TN-PFIZER INC-2017150731

PATIENT
  Age: 70 Year
  Sex: Female

DRUGS (5)
  1. CINCOR [Concomitant]
     Indication: HYPERTENSION
     Dosage: UNK
  2. LOXEN /00639802/ [Concomitant]
     Active Substance: NICARDIPINE
     Indication: HYPERTENSION
     Dosage: UNK
  3. LANTUS XR [Concomitant]
     Active Substance: INSULIN GLARGINE
     Indication: DIABETES MELLITUS
     Dosage: UNK
  4. APIDRA [Concomitant]
     Active Substance: INSULIN GLULISINE
     Indication: DIABETES MELLITUS
     Dosage: UNK
  5. LYRICA [Suspect]
     Active Substance: PREGABALIN
     Dosage: 75 MG, 1X/DAY  IN THE EVENING ONLY
     Route: 048

REACTIONS (5)
  - Extra dose administered [Unknown]
  - Language disorder [Unknown]
  - Dysarthria [Unknown]
  - Ischaemic stroke [Unknown]
  - Hemiparesis [Unknown]
